FAERS Safety Report 8024162-2 (Version None)
Quarter: 2012Q1

REPORT INFORMATION
  Report Type: 
  Country: None (occurrence: None)
  Receive Date: 20120105
  Receipt Date: 20120103
  Transmission Date: 20120608
  Serious: Yes (Death)
  Sender: FDA-Public Use
  Company Number: US-PFIZER INC-2011310127

PATIENT
  Age: 40 Year
  Sex: Female

DRUGS (5)
  1. SUMATRIPTAN SUCCINATE [Suspect]
  2. BUPROPION HYDROCHLORIDE [Suspect]
  3. DISULFIRAM [Suspect]
  4. HYDROXYZINE [Suspect]
  5. LORAZEPAM [Suspect]

REACTIONS (3)
  - COMPLETED SUICIDE [None]
  - CARDIAC ARREST [None]
  - RESPIRATORY ARREST [None]
